FAERS Safety Report 15664783 (Version 1)
Quarter: 2018Q4

REPORT INFORMATION
  Report Type: Spontaneous
  Country: US (occurrence: US)
  Receive Date: 20181128
  Receipt Date: 20181128
  Transmission Date: 20190205
  Serious: Yes (Hospitalization)
  Sender: FDA-Public Use
  Company Number: None

PATIENT
  Sex: Male

DRUGS (22)
  1. SPIRONOLACTONE. [Concomitant]
     Active Substance: SPIRONOLACTONE
  2. MULTIPLE VITAMIN [Concomitant]
     Active Substance: VITAMINS
  3. PRAMIPEXOLE DIHYDROCHLORI [Concomitant]
  4. VITAMIN D3 [Concomitant]
     Active Substance: CHOLECALCIFEROL
  5. SIMVASTATIN. [Concomitant]
     Active Substance: SIMVASTATIN
  6. PRADAXA [Concomitant]
     Active Substance: DABIGATRAN ETEXILATE MESYLATE
  7. VOLTAREN [Concomitant]
     Active Substance: DICLOFENAC SODIUM
  8. GAMMAGARD [Suspect]
     Active Substance: HUMAN IMMUNOGLOBULIN G
     Indication: IMMUNODEFICIENCY COMMON VARIABLE
     Dosage: ?          OTHER FREQUENCY:EVERY 4 WEEKS;?
     Route: 042
  9. BENADRYL [Concomitant]
     Active Substance: DIPHENHYDRAMINE HYDROCHLORIDE
  10. RITUXAN [Concomitant]
     Active Substance: RITUXIMAB
  11. LATANOPROST. [Concomitant]
     Active Substance: LATANOPROST
  12. OMEPRAZOLE. [Concomitant]
     Active Substance: OMEPRAZOLE
  13. ALEVE [Concomitant]
     Active Substance: NAPROXEN SODIUM
  14. DEXILANT [Concomitant]
     Active Substance: DEXLANSOPRAZOLE
  15. TEMAZEPAM. [Concomitant]
     Active Substance: TEMAZEPAM
  16. FIBER DIET [Concomitant]
  17. FESOSOL [Concomitant]
  18. CALTRATE 600+D [Concomitant]
  19. CARVEDILOL. [Concomitant]
     Active Substance: CARVEDILOL
  20. NITROQUICK [Concomitant]
     Active Substance: NITROGLYCERIN
  21. KLOR-CON [Concomitant]
     Active Substance: POTASSIUM CHLORIDE
  22. FUROSEMIDE. [Concomitant]
     Active Substance: FUROSEMIDE

REACTIONS (1)
  - Spinal osteoarthritis [None]
